FAERS Safety Report 10249038 (Version 2)
Quarter: 2014Q2

REPORT INFORMATION
  Report Type: Spontaneous
  Country: ZA (occurrence: ZA)
  Receive Date: 20140620
  Receipt Date: 20140620
  Transmission Date: 20141212
  Serious: Yes (Other)
  Sender: FDA-Public Use
  Company Number: PHHY2014ZA061348

PATIENT
  Sex: Female

DRUGS (2)
  1. ACLASTA [Suspect]
     Indication: OSTEOPOROSIS
     Dosage: 5 MG PER 100ML
     Route: 042
     Dates: start: 20130213
  2. ACLASTA [Suspect]
     Dosage: 5 MG PER 100 ML
     Route: 042
     Dates: start: 20140218

REACTIONS (5)
  - Multiple system atrophy [Unknown]
  - Loss of consciousness [Unknown]
  - Contusion [Unknown]
  - Influenza [Unknown]
  - Middle insomnia [Unknown]
